FAERS Safety Report 18567531 (Version 7)
Quarter: 2021Q2

REPORT INFORMATION
  Report Type: Spontaneous
  Country: DE (occurrence: DE)
  Receive Date: 20201202
  Receipt Date: 20210628
  Transmission Date: 20210717
  Serious: Yes (Life-Threatening, Hospitalization, Other)
  Sender: FDA-Public Use
  Company Number: DE-AUROBINDO-AUR-APL-2020-058946

PATIENT
  Age: 41 Year
  Sex: Female
  Weight: 100 kg

DRUGS (90)
  1. ACETAMINOPHENE [Suspect]
     Active Substance: ACETAMINOPHEN
     Indication: PRODUCT USED FOR UNKNOWN INDICATION
     Dosage: UNK
     Route: 065
  2. GRANOCYTE [Suspect]
     Active Substance: LENOGRASTIM
     Dosage: 1X 34, QD, 1X DAILY.
     Route: 065
     Dates: start: 20160120
  3. VALSARTAN 1A PHARMA [Suspect]
     Active Substance: VALSARTAN
     Dosage: UNK
     Route: 065
     Dates: start: 20150102
  4. VALSARTAN 1A PHARMA [Suspect]
     Active Substance: VALSARTAN
     Dosage: UNK
     Route: 065
     Dates: start: 20160427
  5. VINCRISTIN [Suspect]
     Active Substance: VINCRISTINE
     Indication: HODGKIN^S DISEASE
     Dosage: 2 MILLIGRAM ABSOLUTE, DAY 8
     Route: 065
     Dates: start: 20160120
  6. BACLOFEN. [Concomitant]
     Active Substance: BACLOFEN
     Dosage: 80 MICROGRAM, ONCE A DAY
     Route: 065
     Dates: start: 2015
  7. LEVOTHYROXINE. [Concomitant]
     Active Substance: LEVOTHYROXINE
     Indication: PRODUCT USED FOR UNKNOWN INDICATION
     Dosage: UNK
     Route: 065
  8. MOVICOL [Concomitant]
     Active Substance: POLYETHYLENE GLYCOL 3350\POTASSIUM CHLORIDE\SODIUM BICARBONATE\SODIUM CHLORIDE
     Dosage: 1 DF, SACHET, 1X IF NEEDED
     Route: 065
  9. PANTOZOL [Concomitant]
     Active Substance: PANTOPRAZOLE SODIUM
     Indication: PRODUCT USED FOR UNKNOWN INDICATION
     Dosage: 1X 40, 1X DAILY (EVENING)
     Route: 065
  10. VALSACOR COMP [Concomitant]
     Active Substance: HYDROCHLOROTHIAZIDE\VALSARTAN
     Indication: HYPERTENSION
     Dosage: UNK
     Route: 065
     Dates: start: 20170725
  11. VALSACOR COMP [Concomitant]
     Active Substance: HYDROCHLOROTHIAZIDE\VALSARTAN
     Dosage: UNK
     Route: 065
     Dates: start: 201704
  12. VALSARTAN AND HYDROCHLOROTHIAZIDE [Suspect]
     Active Substance: HYDROCHLOROTHIAZIDE\VALSARTAN
     Indication: HYPERTENSION
     Dosage: UNK
     Route: 065
     Dates: start: 20140707
  13. VALSARTAN AND HYDROCHLOROTHIAZIDE [Suspect]
     Active Substance: HYDROCHLOROTHIAZIDE\VALSARTAN
     Dosage: UNK
  14. BACLOFEN. [Suspect]
     Active Substance: BACLOFEN
     Dosage: 200 MICROGRAM, VIA PUMP
     Route: 058
  15. BLEOMYCIN [Suspect]
     Active Substance: BLEOMYCIN SULFATE
     Indication: HODGKIN^S DISEASE
     Dosage: 25 MILLIGRAM/SQ. METER
     Route: 065
     Dates: start: 20151027
  16. CYCLOPHOSPHAMIDE. [Suspect]
     Active Substance: CYCLOPHOSPHAMIDE
     Indication: HODGKIN^S DISEASE
     Dosage: 750 MILLIGRAM/SQ. METER
     Route: 065
     Dates: start: 20160113
  17. DACARBAZINE. [Suspect]
     Active Substance: DACARBAZINE
     Indication: HODGKIN^S DISEASE
     Dosage: 375 MILLIGRAM/SQ. METER (DAY 1 AND DAY 15)
     Route: 065
     Dates: start: 20151027
  18. DIAZEPAM. [Suspect]
     Active Substance: DIAZEPAM
     Indication: PAIN IN EXTREMITY
     Dosage: 10 MILLIGRAM
     Route: 065
     Dates: start: 20150608
  19. DIPIDOLOR [Suspect]
     Active Substance: PIRITRAMIDE
     Indication: PAIN IN EXTREMITY
     Dosage: 15 MILLIGRAM
     Route: 065
     Dates: start: 20150608
  20. VALSARTAN HEXAL COMP [Suspect]
     Active Substance: HYDROCHLOROTHIAZIDE\VALSARTAN
     Dosage: UNK
     Route: 065
     Dates: start: 20170411
  21. VALSARTAN 1A PHARMA [Suspect]
     Active Substance: VALSARTAN
     Dosage: UNK
     Route: 065
     Dates: start: 20141014
  22. BACLOFEN. [Concomitant]
     Active Substance: BACLOFEN
     Dosage: 50 MICROGRAM, ONCE A DAY
     Route: 065
     Dates: start: 2015, end: 2015
  23. BACLOFEN. [Concomitant]
     Active Substance: BACLOFEN
     Dosage: 25 MILLIGRAM,25 MG (1?1?1?1 ONCE IN MORNING, NOON, AFTERNOON, EVENING)
     Route: 048
     Dates: start: 20180102
  24. VALSARTAN. [Concomitant]
     Active Substance: VALSARTAN
     Indication: HYPERTENSION
     Dosage: UNK,160 MG / 12.5 MG
     Route: 065
     Dates: start: 201301
  25. TRANXILIUM [Concomitant]
     Active Substance: CLORAZEPATE DIPOTASSIUM
     Dosage: 40 MILLIGRAM, ONCE A DAY(10 MG, BID (1X 10 MG, BID, 2X DAILY (MORNING AND EVENING) )
  26. PREDNISOLONE. [Suspect]
     Active Substance: PREDNISOLONE
     Indication: HODGKIN^S DISEASE
     Dosage: 40 MILLIGRAM (40 MG MG/M2 (80 MG), DAY 1 ? 14, DAILY )
     Route: 065
     Dates: start: 20160113, end: 20160126
  27. VALSARTAN HEXAL COMP [Suspect]
     Active Substance: HYDROCHLOROTHIAZIDE\VALSARTAN
     Dosage: 1 DOSAGE FORM
     Route: 065
     Dates: start: 20141014
  28. VALSARTAN HEXAL COMP [Suspect]
     Active Substance: HYDROCHLOROTHIAZIDE\VALSARTAN
     Dosage: UNK
     Route: 065
     Dates: start: 20150415
  29. VALSARTAN HEXAL COMP [Suspect]
     Active Substance: HYDROCHLOROTHIAZIDE\VALSARTAN
     Dosage: UNK
     Route: 065
     Dates: start: 20150611
  30. VALSARTAN HEXAL COMP [Suspect]
     Active Substance: HYDROCHLOROTHIAZIDE\VALSARTAN
     Dosage: UNK
     Route: 065
     Dates: start: 20160427
  31. VALSARTAN 1A PHARMA [Suspect]
     Active Substance: VALSARTAN
     Indication: HYPERTENSION
     Dosage: 160/ 12.5 MG
     Route: 065
     Dates: start: 201407
  32. VALSARTAN 1A PHARMA [Suspect]
     Active Substance: VALSARTAN
     Dosage: UNK
     Route: 065
     Dates: start: 201410
  33. BACLOFEN. [Concomitant]
     Active Substance: BACLOFEN
     Indication: PRODUCT USED FOR UNKNOWN INDICATION
     Dosage: UNK (25/20 MG IN MORNING, 20 MG IN NOON, 20 MG IN THE EVENING
     Route: 065
  34. DIAZEPAM. [Concomitant]
     Active Substance: DIAZEPAM
     Indication: PRODUCT USED FOR UNKNOWN INDICATION
     Dosage: 10 MILLIGRAM (10 MG1X 2.5, QD, 1X DAILY (EVENING)10 MG1X 2.5, QD, 1X DAILY (MORNING)
     Route: 065
  35. LYRICA [Concomitant]
     Active Substance: PREGABALIN
     Indication: PRODUCT USED FOR UNKNOWN INDICATION
     Dosage: 1X 150, 2X DAILY (MORNING AND EVENING)
     Route: 065
  36. ACETYLSALICYLIC ACID [Suspect]
     Active Substance: ASPIRIN
     Indication: PRODUCT USED FOR UNKNOWN INDICATION
     Dosage: UNK
     Route: 065
  37. DOXORUBICIN [Suspect]
     Active Substance: DOXORUBICIN
     Dosage: 25 MG/M2 (DAY 1)
     Route: 065
     Dates: start: 20160113
  38. BACLOFEN. [Suspect]
     Active Substance: BACLOFEN
     Dosage: 200 UG/20 MG VIA PUMP (1?1?1)
     Route: 058
  39. ETOPOSIDE. [Suspect]
     Active Substance: ETOPOSIDE
     Indication: HODGKIN^S DISEASE
     Dosage: 100 MILLIGRAM/SQ. METER
     Route: 065
     Dates: start: 20160113
  40. GRANOCYTE [Suspect]
     Active Substance: LENOGRASTIM
     Dosage: UNK
     Route: 065
     Dates: start: 201511
  41. NEULASTA [Suspect]
     Active Substance: PEGFILGRASTIM
     Indication: NEUTROPENIA
     Dosage: UNK
     Route: 058
     Dates: start: 20151212
  42. DIAZEPAM. [Concomitant]
     Active Substance: DIAZEPAM
     Dosage: 1X 2.5, QD, 1X DAILY (EVENING)
     Route: 065
  43. PANTOZOL [Concomitant]
     Active Substance: PANTOPRAZOLE SODIUM
     Dosage: 1X 40, 1X DAILY (MORNING)
     Route: 065
  44. PANTOZOL [Concomitant]
     Active Substance: PANTOPRAZOLE SODIUM
     Dosage: 40 MILLIGRAM, ONCE A DAY
     Route: 065
  45. VALSACOR COMP [Concomitant]
     Active Substance: HYDROCHLOROTHIAZIDE\VALSARTAN
     Dosage: UNK
     Route: 065
     Dates: start: 20170411
  46. TRANXILIUM [Concomitant]
     Active Substance: CLORAZEPATE DIPOTASSIUM
     Dosage: 20 MILLIGRAM, ONCE A DAY (1X 10 MG, BID, 2X DAILY (MORNING AND EVENING))
     Route: 065
  47. DICLOFENAC [Suspect]
     Active Substance: DICLOFENAC
     Indication: PRODUCT USED FOR UNKNOWN INDICATION
     Dosage: UNK
     Route: 065
  48. GRANOCYTE [Suspect]
     Active Substance: LENOGRASTIM
     Indication: NEUTROPENIA
     Dosage: UNK
     Route: 065
     Dates: start: 201511
  49. VALSARTAN HEXAL COMP [Suspect]
     Active Substance: HYDROCHLOROTHIAZIDE\VALSARTAN
     Dosage: UNK
     Route: 065
     Dates: start: 20170725
  50. BACLOFEN. [Concomitant]
     Active Substance: BACLOFEN
     Dosage: 80 UG, QD, VIA PUMP
     Route: 065
     Dates: end: 2015
  51. CLONIDINE. [Concomitant]
     Active Substance: CLONIDINE
     Dosage: 0.15 MICROGRAM, TWO TIMES A DAY,(1?0?1 IN MORNINGA AND EVENING)
     Route: 065
  52. LYRICA [Concomitant]
     Active Substance: PREGABALIN
     Dosage: 1X 75, 1X DAILY (EVENING), START DATE: ?? FEB/MAR 2016
     Route: 065
     Dates: start: 2016
  53. MOTILIUM [Concomitant]
     Active Substance: DOMPERIDONE
     Indication: PRODUCT USED FOR UNKNOWN INDICATION
     Dosage: 1 DF,SACHET, 4X DAILY
     Route: 065
  54. MOVICOL [Concomitant]
     Active Substance: POLYETHYLENE GLYCOL 3350\POTASSIUM CHLORIDE\SODIUM BICARBONATE\SODIUM CHLORIDE
     Indication: PRODUCT USED FOR UNKNOWN INDICATION
     Dosage: UNK, SACHET, 1X DAILY (MORNING)
     Route: 065
  55. DOXORUBICIN [Suspect]
     Active Substance: DOXORUBICIN
     Indication: HODGKIN^S DISEASE
     Dosage: 25 MG/M2 (DAY 1 AND DAY 15)
     Route: 065
     Dates: start: 20151027
  56. VALSARTAN HEXAL COMP [Suspect]
     Active Substance: HYDROCHLOROTHIAZIDE\VALSARTAN
     Dosage: UNK
     Route: 065
     Dates: start: 20150102
  57. VALSARTAN HEXAL COMP [Suspect]
     Active Substance: HYDROCHLOROTHIAZIDE\VALSARTAN
     Dosage: UNK
     Route: 065
     Dates: start: 20170112
  58. VALSARTAN HEXAL COMP [Suspect]
     Active Substance: HYDROCHLOROTHIAZIDE\VALSARTAN
     Dosage: UNK
     Route: 065
     Dates: start: 201704
  59. VALSARTAN 1A PHARMA [Suspect]
     Active Substance: VALSARTAN
     Dosage: UNK
     Route: 065
     Dates: start: 20150415
  60. VINBLASTINE [Suspect]
     Active Substance: VINBLASTINE
     Indication: HODGKIN^S DISEASE
     Dosage: 6 MILLIGRAM/SQ. METER  (DAY 1 AND DAY 15)
     Route: 065
     Dates: start: 20151027
  61. BACLOFEN. [Concomitant]
     Active Substance: BACLOFEN
     Dosage: UNK
     Route: 048
     Dates: start: 20170704, end: 20170712
  62. BACLOFEN. [Concomitant]
     Active Substance: BACLOFEN
     Dosage: UNK (125 UG/24 HOURS 2000 UG/ML VIA PUMP)
     Route: 065
     Dates: start: 20180228
  63. LYRICA [Concomitant]
     Active Substance: PREGABALIN
     Dosage: 2X 75, 1X DAILY (MORNING), START DATE: ?? FEB/MAR 2016
     Route: 065
     Dates: start: 2016
  64. LYRICA [Concomitant]
     Active Substance: PREGABALIN
     Dosage: 1X 150, 1X, STOP DATE: ?? FEB/MAR 2016
     Route: 065
     Dates: start: 2016
  65. TRANXILIUM [Concomitant]
     Active Substance: CLORAZEPATE DIPOTASSIUM
     Indication: PRODUCT USED FOR UNKNOWN INDICATION
     Dosage: 10 MILLIGRAM, ONCE A DAY (MORNING)
     Route: 065
  66. TRANXILIUM [Concomitant]
     Active Substance: CLORAZEPATE DIPOTASSIUM
     Dosage: 15 MILLIGRAM, ONCE A DAY (EVENING OR NIGHT)
     Route: 065
  67. BACLOFEN. [Suspect]
     Active Substance: BACLOFEN
     Indication: PRODUCT USED FOR UNKNOWN INDICATION
     Dosage: 200 MICROGRAM, VIA PUMP
     Route: 058
  68. DIPIDOLOR [Suspect]
     Active Substance: PIRITRAMIDE
     Indication: BACK PAIN
  69. GRANOCYTE [Suspect]
     Active Substance: LENOGRASTIM
     Dosage: 1X 34, QD, 1X DAILY.
     Route: 065
     Dates: start: 20160203, end: 20160205
  70. PROCARBAZINE [Suspect]
     Active Substance: PROCARBAZINE
     Indication: HODGKIN^S DISEASE
     Dosage: 100 MILLIGRAM/SQ. METER
     Route: 065
     Dates: start: 20190113, end: 20190119
  71. VALSARTAN HEXAL COMP [Suspect]
     Active Substance: HYDROCHLOROTHIAZIDE\VALSARTAN
     Indication: HYPERTENSION
     Dosage: 1 DOSAGE FORM, ONCE A DAY
     Route: 065
     Dates: start: 201407
  72. VALSARTAN HEXAL COMP [Suspect]
     Active Substance: HYDROCHLOROTHIAZIDE\VALSARTAN
     Dosage: UNK
     Route: 065
     Dates: start: 20140707
  73. VALSARTAN HEXAL COMP [Suspect]
     Active Substance: HYDROCHLOROTHIAZIDE\VALSARTAN
     Dosage: UNK
     Route: 065
     Dates: start: 20160804
  74. VALSARTAN 1A PHARMA [Suspect]
     Active Substance: VALSARTAN
     Dosage: 80 MILLIGRAM
     Route: 065
     Dates: start: 201407
  75. VALSARTAN 1A PHARMA [Suspect]
     Active Substance: VALSARTAN
     Dosage: UNK
     Route: 065
     Dates: start: 20150611
  76. CLEXANE [Concomitant]
     Active Substance: ENOXAPARIN SODIUM
     Indication: THROMBOSIS PROPHYLAXIS
     Dosage: 40 MILLIGRAM, ONCE A DAY
     Route: 058
  77. CLONIDINE. [Concomitant]
     Active Substance: CLONIDINE
     Indication: PRODUCT USED FOR UNKNOWN INDICATION
     Dosage: UNK UNK, ONCE A DAY,BID (1X0.5 MG)
     Route: 065
  78. MORPHINE [Concomitant]
     Active Substance: MORPHINE
     Indication: PAIN
     Dosage: UNK, VIA PUMP
     Route: 065
  79. MOTILIUM [Concomitant]
     Active Substance: DOMPERIDONE
     Dosage: 10 MILLIGRAM
     Route: 048
  80. PALLADON [Concomitant]
     Active Substance: HYDROMORPHONE
     Indication: PRODUCT USED FOR UNKNOWN INDICATION
     Dosage: 8 MILLIGRAM, TWO TIMES A DAY (1X 8MG, BID)
     Route: 065
  81. VALSARTAN. [Concomitant]
     Active Substance: VALSARTAN
     Dosage: UNK
     Route: 065
     Dates: start: 20130124
  82. VIGANTOLETTEN [Concomitant]
     Active Substance: CHOLECALCIFEROL
     Indication: PRODUCT USED FOR UNKNOWN INDICATION
     Dosage: 100 MILLIGRAM (IN THE MORNING)
     Route: 048
  83. IBUPROFEN. [Suspect]
     Active Substance: IBUPROFEN
     Indication: PRODUCT USED FOR UNKNOWN INDICATION
     Dosage: UNK
     Route: 065
  84. BLEOMYCIN [Suspect]
     Active Substance: BLEOMYCIN SULFATE
     Dosage: 10 MILLIGRAM/SQ. METER
     Route: 065
     Dates: start: 20160120
  85. DIAZEPAM. [Suspect]
     Active Substance: DIAZEPAM
     Indication: BACK PAIN
  86. VALSARTAN HEXAL COMP [Suspect]
     Active Substance: HYDROCHLOROTHIAZIDE\VALSARTAN
     Dosage: UNK
     Route: 065
     Dates: start: 201410
  87. VALSARTAN 1A PHARMA [Suspect]
     Active Substance: VALSARTAN
     Dosage: 80 MILLIGRAM
     Route: 065
     Dates: start: 20140707
  88. VALSARTAN 1A PHARMA [Suspect]
     Active Substance: VALSARTAN
     Dosage: UNK
     Route: 065
     Dates: start: 20160804
  89. CITALOPRAM [Concomitant]
     Active Substance: CITALOPRAM HYDROBROMIDE
     Indication: PRODUCT USED FOR UNKNOWN INDICATION
     Dosage: 1X 20, 1X DAILY (MORNING)
     Route: 065
  90. COTRIMOX [Concomitant]
     Active Substance: SULFAMETHOXAZOLE\TRIMETHOPRIM
     Indication: PNEUMONIA
     Dosage: 2 DOSAGE FORM, ONCE A DAY
     Route: 065

REACTIONS (68)
  - Hodgkin^s disease [Unknown]
  - Nausea [Recovering/Resolving]
  - Pneumonia [Unknown]
  - Hyperpyrexia [Unknown]
  - Intervertebral disc disorder [Unknown]
  - Fatigue [Unknown]
  - Neurological decompensation [Recovering/Resolving]
  - Fall [Unknown]
  - Uterine enlargement [Unknown]
  - Candida infection [Unknown]
  - Dyspnoea [Recovering/Resolving]
  - Viral infection [Recovered/Resolved]
  - Back pain [Recovering/Resolving]
  - Tissue infiltration [Unknown]
  - Drug abuse [Unknown]
  - Hepatic steatosis [Unknown]
  - Neutropenia [Recovering/Resolving]
  - Haematoma [Unknown]
  - Device malfunction [Unknown]
  - Dizziness [Unknown]
  - Hypochromic anaemia [Unknown]
  - Sleep apnoea syndrome [Unknown]
  - Anaesthesia [Recovering/Resolving]
  - Drug intolerance [Unknown]
  - Pain [Recovering/Resolving]
  - Dysphagia [Unknown]
  - Bone pain [Unknown]
  - Pyrexia [Recovered/Resolved]
  - Psychogenic seizure [Unknown]
  - Speech disorder [Recovering/Resolving]
  - Inguinal hernia [Unknown]
  - Lung disorder [Unknown]
  - Hyperventilation [Unknown]
  - Drug hypersensitivity [Unknown]
  - Obesity [Unknown]
  - Arthralgia [Unknown]
  - Red blood cell sedimentation rate increased [Unknown]
  - Pulmonary congestion [Unknown]
  - Urinary tract infection [Unknown]
  - Hypothyroidism [Unknown]
  - Hypokinesia [Not Recovered/Not Resolved]
  - Respiratory failure [Unknown]
  - Muscle spasticity [Unknown]
  - Abdominal tenderness [Unknown]
  - Klebsiella infection [Unknown]
  - Pain in extremity [Recovering/Resolving]
  - Spinal pain [Unknown]
  - Monoplegia [Unknown]
  - Hyperhidrosis [Unknown]
  - Dysaesthesia [Recovering/Resolving]
  - Basal ganglion degeneration [Unknown]
  - Headache [Unknown]
  - Lymphadenopathy [Recovering/Resolving]
  - Vomiting [Recovering/Resolving]
  - Cough [Unknown]
  - Loss of consciousness [Unknown]
  - Renal cyst [Unknown]
  - Hypoaesthesia [Recovering/Resolving]
  - Splenomegaly [Unknown]
  - General physical health deterioration [Unknown]
  - Somnolence [Recovering/Resolving]
  - Sepsis [Unknown]
  - Tenderness [Unknown]
  - Inflammation [Recovering/Resolving]
  - Tremor [Unknown]
  - Sleep disorder [Unknown]
  - Myalgia [Unknown]
  - Tachycardia [Unknown]

NARRATIVE: CASE EVENT DATE: 20150608
